FAERS Safety Report 13728752 (Version 1)
Quarter: 2017Q3

REPORT INFORMATION
  Report Type: Spontaneous
  Country: US (occurrence: US)
  Receive Date: 20170707
  Receipt Date: 20170707
  Transmission Date: 20171127
  Serious: No
  Sender: FDA-Public Use
  Company Number: US-JNJFOC-20170628930

PATIENT
  Age: 52 Year
  Sex: Male
  Weight: 104.78 kg

DRUGS (2)
  1. XARELTO [Suspect]
     Active Substance: RIVAROXABAN
     Indication: DEEP VEIN THROMBOSIS
     Route: 048
     Dates: start: 20170605
  2. CIALIS [Concomitant]
     Active Substance: TADALAFIL
     Route: 065

REACTIONS (1)
  - Protein S increased [Unknown]

NARRATIVE: CASE EVENT DATE: 20170619
